FAERS Safety Report 11767627 (Version 1)
Quarter: 2015Q4

REPORT INFORMATION
  Report Type: Spontaneous
  Country: US (occurrence: None)
  Receive Date: 20151120
  Receipt Date: 20151120
  Transmission Date: 20160304
  Serious: No
  Sender: FDA-Public Use
  Company Number: None

PATIENT
  Age: 65 Year
  Sex: Male

DRUGS (4)
  1. AMLODAPINE [Concomitant]
  2. GLEEVEC [Suspect]
     Active Substance: IMATINIB MESYLATE
     Indication: GASTRIC CANCER
  3. WATER PILL - TRIAMTEREME HCTZ [Concomitant]
  4. METFORMIN [Concomitant]
     Active Substance: METFORMIN HYDROCHLORIDE

REACTIONS (1)
  - Prostate cancer [None]

NARRATIVE: CASE EVENT DATE: 20151117
